FAERS Safety Report 6617594-8 (Version None)
Quarter: 2010Q1

REPORT INFORMATION
  Report Type: 
  Country: None (occurrence: None)
  Receive Date: 20100302
  Receipt Date: 20100216
  Transmission Date: 20100710
  Serious: Yes (Hospitalization, Other)
  Sender: FDA-Public Use
  Company Number: 2010AP000272

PATIENT
  Age: 56 Year
  Sex: Male

DRUGS (4)
  1. PREDNISOLONE [Suspect]
     Dosage: 10 MG; QD, 25 MG;QD
  2. MYCOPHENOLATE SODIUM (MYCOPHENOLATE SODIUM) [Suspect]
     Dosage: 720 MG; BID
  3. CYCLOSPORINE [Suspect]
  4. BASILIXIMAB (BASILIXIMAB) [Suspect]
     Dosage: 20 MG

REACTIONS (8)
  - HAEMODIALYSIS [None]
  - MUMPS [None]
  - MYALGIA [None]
  - ORCHITIS [None]
  - PERIVASCULAR DERMATITIS [None]
  - PYELONEPHRITIS [None]
  - TUBULOINTERSTITIAL NEPHRITIS [None]
  - VESTIBULAR NEURONITIS [None]
